FAERS Safety Report 11451933 (Version 1)
Quarter: 2015Q3

REPORT INFORMATION
  Report Type: Spontaneous
  Country: US (occurrence: US)
  Receive Date: 20150903
  Receipt Date: 20150903
  Transmission Date: 20151125
  Serious: Yes (Hospitalization)
  Sender: FDA-Public Use
  Company Number: US-JNJFOC-20150822596

PATIENT
  Sex: Female
  Weight: 57 kg

DRUGS (3)
  1. TIKOSYN [Suspect]
     Active Substance: DOFETILIDE
     Indication: ARRHYTHMIA
     Route: 048
     Dates: start: 2014
  2. XARELTO [Suspect]
     Active Substance: RIVAROXABAN
     Indication: CEREBROVASCULAR ACCIDENT PROPHYLAXIS
     Route: 048
  3. TIKOSYN [Suspect]
     Active Substance: DOFETILIDE
     Indication: ARRHYTHMIA
     Route: 048
     Dates: start: 2008

REACTIONS (1)
  - Gastrointestinal haemorrhage [Recovered/Resolved]
